FAERS Safety Report 5606758-8 (Version None)
Quarter: 2008Q1

REPORT INFORMATION
  Report Type: 
  Country: None (occurrence: None)
  Receive Date: 20080125
  Receipt Date: 20080111
  Transmission Date: 20080703
  Serious: Yes (Hospitalization, Disabling, Other)
  Sender: FDA-Public Use
  Company Number: FABR-12258

PATIENT
  Age: 52 Year
  Sex: Male
  Weight: 71.8 kg

DRUGS (4)
  1. FABRAZYME                     (AGALSIDASE BETA) POWDER [Suspect]
     Indication: FABRY'S DISEASE
     Dosage: 75 MG,Q2W, INTRAVENOUS
     Route: 042
     Dates: start: 20050101
  2. FABRAZYME [Suspect]
  3. FABRAZYME [Suspect]
  4. FABRAZYME [Suspect]

REACTIONS (20)
  - ATRIAL FIBRILLATION [None]
  - BACK PAIN [None]
  - BLOOD CREATININE INCREASED [None]
  - BLOOD PRESSURE DECREASED [None]
  - BRADYCARDIA [None]
  - DURAL TEAR [None]
  - EAR INFECTION [None]
  - EOSINOPHILIA [None]
  - GUILLAIN-BARRE SYNDROME [None]
  - HEARING IMPAIRED [None]
  - ILEUS [None]
  - MENINGITIS PNEUMOCOCCAL [None]
  - MUSCULOSKELETAL PAIN [None]
  - PAIN IN EXTREMITY [None]
  - POST PROCEDURAL COMPLICATION [None]
  - PRURITUS ALLERGIC [None]
  - SUPRAVENTRICULAR TACHYCARDIA [None]
  - TROPONIN INCREASED [None]
  - VENTRICULAR TACHYCARDIA [None]
  - WEIGHT DECREASED [None]
